FAERS Safety Report 24957346 (Version 1)
Quarter: 2025Q1

REPORT INFORMATION
  Report Type: Report from Study
  Country: US (occurrence: US)
  Receive Date: 20250211
  Receipt Date: 20250211
  Transmission Date: 20250409
  Serious: Yes (Other)
  Sender: ALEXION PHARMACEUTICALS
  Company Number: US-AstraZeneca-CH-00753584A

PATIENT

DRUGS (2)
  1. STRENSIQ [Suspect]
     Active Substance: ASFOTASE ALFA
     Route: 065
  2. ELIQUIS [Concomitant]
     Active Substance: APIXABAN
     Route: 065

REACTIONS (9)
  - Cardiac flutter [Unknown]
  - Needle fatigue [Unknown]
  - Atrial flutter [Unknown]
  - Melanocytic naevus [Recovering/Resolving]
  - Arachnoid web [Unknown]
  - Haemangioma [Unknown]
  - Injection site pain [Unknown]
  - Injection site pruritus [Unknown]
  - Injection site mass [Unknown]
